FAERS Safety Report 10588479 (Version 2)
Quarter: 2016Q1

REPORT INFORMATION
  Report Type: Spontaneous
  Country: IN (occurrence: SA)
  Receive Date: 20141117
  Receipt Date: 20160329
  Transmission Date: 20160525
  Serious: Yes (Death, Hospitalization)
  Sender: FDA-Public Use
  Company Number: IN-PFIZER INC-2014314616

PATIENT
  Age: 42 Year
  Sex: Female

DRUGS (1)
  1. OVRAL-L [Suspect]
     Active Substance: ETHINYL ESTRADIOL\LEVONORGESTREL
     Indication: MENSTRUAL CYCLE MANAGEMENT
     Dosage: UNK
     Route: 048

REACTIONS (2)
  - Intentional product misuse [Unknown]
  - Death [Fatal]
